FAERS Safety Report 12770637 (Version 1)
Quarter: 2016Q3

REPORT INFORMATION
  Report Type: Spontaneous
  Country: DE (occurrence: DE)
  Receive Date: 20160922
  Receipt Date: 20160922
  Transmission Date: 20161109
  Serious: Yes (Hospitalization)
  Sender: FDA-Public Use
  Company Number: DE-TEVA-691727GER

PATIENT
  Age: 65 Year
  Sex: Female

DRUGS (6)
  1. QUETIAPIN RETARD [Suspect]
     Active Substance: QUETIAPINE
     Indication: AFFECTIVE DISORDER
     Route: 048
     Dates: start: 20160715, end: 20160809
  2. ESCITALOPRAM [Concomitant]
     Active Substance: ESCITALOPRAM OXALATE
     Indication: AFFECTIVE DISORDER
     Route: 048
     Dates: start: 20160713, end: 20160802
  3. QUETIAPIN RETARD [Suspect]
     Active Substance: QUETIAPINE
     Dosage: 200 MILLIGRAM DAILY; BEFORE 600MG
  4. LORAZEPAM. [Concomitant]
     Active Substance: LORAZEPAM
     Indication: AFFECTIVE DISORDER
     Dosage: 4 MILLIGRAM DAILY; SLOW TAPERING STEP BY STEP
     Route: 048
     Dates: start: 20160715, end: 20160802
  5. PANTOPRAZOL [Concomitant]
     Active Substance: PANTOPRAZOLE SODIUM
     Indication: CHRONIC GASTRITIS
     Route: 048
     Dates: start: 201606
  6. VIGANTOLETTEN [Concomitant]
     Active Substance: CHOLECALCIFEROL
     Indication: OSTEOPOROSIS
     Route: 048

REACTIONS (2)
  - Jaundice [Recovering/Resolving]
  - Liver injury [Recovering/Resolving]

NARRATIVE: CASE EVENT DATE: 20160809
